FAERS Safety Report 4705950-4 (Version None)
Quarter: 2005Q2

REPORT INFORMATION
  Report Type: 
  Country: None (occurrence: None)
  Receive Date: 20050628
  Receipt Date: 20040930
  Transmission Date: 20051028
  Serious: Yes (Hospitalization)
  Sender: FDA-Public Use
  Company Number: VISP-PR-0409S-0351

PATIENT
  Age: 66 Year
  Sex: Male

DRUGS (12)
  1. VISIPAQUE [Suspect]
     Indication: DIZZINESS
     Dosage: 80 ML, SINGLE DOSE, I.V.
     Route: 042
     Dates: start: 20040927, end: 20040927
  2. PANTOPRAZOLE (PROTONIX) [Concomitant]
  3. SODIUM CHLORIDE [Concomitant]
  4. TYLENOL [Concomitant]
  5. FENTANYL CITRATE [Concomitant]
  6. MIDAZOLAM HYDROCHLORIDE [Concomitant]
  7. MORPHINE SULFATE [Concomitant]
  8. PROPOFOL 1000 MG/100 [Concomitant]
  9. SEVOFLURANE (ULTANE) [Concomitant]
  10. SERETIDE MITE (ADVAIR DISKUS 100/50) [Concomitant]
  11. FLOMAX [Concomitant]
  12. PLAVIX [Concomitant]

REACTIONS (1)
  - SYNCOPE [None]
